FAERS Safety Report 4562660-4 (Version None)
Quarter: 2005Q1

REPORT INFORMATION
  Report Type: 
  Country: None (occurrence: None)
  Receive Date: 20050124
  Receipt Date: 20050111
  Transmission Date: 20050727
  Serious: Yes (Hospitalization)
  Sender: FDA-Public Use
  Company Number: 2005012228

PATIENT
  Age: 63 Year
  Sex: Male

DRUGS (4)
  1. CELEBREX [Suspect]
     Indication: RHEUMATOID ARTHRITIS
     Dosage: ORAL
     Route: 048
  2. OMEPRAZOLE [Concomitant]
  3. CYCLOSPORINE [Concomitant]
  4. DRUG UNSPECIFIED [Concomitant]

REACTIONS (2)
  - SKIN DISCOLOURATION [None]
  - SKIN REACTION [None]
